FAERS Safety Report 5390828-6 (Version None)
Quarter: 2007Q3

REPORT INFORMATION
  Report Type: 
  Country: None (occurrence: None)
  Receive Date: 20070712
  Receipt Date: 20070518
  Transmission Date: 20080115
  Serious: Yes (Life-Threatening)
  Sender: FDA-Public Use
  Company Number: 6033615

PATIENT
  Age: 70 Year
  Sex: Female

DRUGS (6)
  1. ENALAPRIL MALEATE [Suspect]
     Indication: HYPERTENSION
     Dosage: 10 MG (10 MG, 1 IN 1 D) ORAL
     Route: 048
  2. METOPROLOL SUCCINATE [Suspect]
     Indication: HYPERTENSION
     Dosage: 50 MG (50 MG, 1 IN 1 D) ORAL
     Route: 048
  3. BUPIVACAINE [Concomitant]
  4. INSULIN              (INSULIN) [Concomitant]
  5. CHLOORTALIDON             (CHLORTALIDONE) [Concomitant]
  6. MORPHINE [Concomitant]

REACTIONS (16)
  - BLOOD PH DECREASED [None]
  - BLOOD PRESSURE IMMEASURABLE [None]
  - CAROTID ARTERY STENOSIS [None]
  - DISORIENTATION [None]
  - EMOTIONAL DISORDER [None]
  - HAEMOGLOBIN DECREASED [None]
  - HYPERCAPNIA [None]
  - HYPOKALAEMIA [None]
  - HYPOMAGNESAEMIA [None]
  - HYPOPHOSPHATAEMIA [None]
  - PANIC ATTACK [None]
  - PERSONALITY CHANGE [None]
  - PROCEDURAL HYPOTENSION [None]
  - SINUS BRADYCARDIA [None]
  - SPEECH DISORDER DEVELOPMENTAL [None]
  - UNRESPONSIVE TO STIMULI [None]
